FAERS Safety Report 8303395-1 (Version None)
Quarter: 2012Q2

REPORT INFORMATION
  Report Type: 
  Country: None (occurrence: None)
  Receive Date: 20120423
  Receipt Date: 20120418
  Transmission Date: 20120825
  Serious: Yes (Other)
  Sender: FDA-Public Use
  Company Number: FR-SP-2012-04054

PATIENT
  Sex: Male
  Weight: 75 kg

DRUGS (1)
  1. IMMUCYST [Suspect]
     Indication: BLADDER CANCER
     Route: 043
     Dates: start: 20110920, end: 20110920

REACTIONS (2)
  - FISTULA [None]
  - ORCHITIS [None]
